FAERS Safety Report 19070385 (Version 1)
Quarter: 2021Q1

REPORT INFORMATION
  Report Type: Spontaneous
  Country: CA (occurrence: CA)
  Receive Date: 20210329
  Receipt Date: 20210329
  Transmission Date: 20210420
  Serious: Yes (Other)
  Sender: FDA-Public Use
  Company Number: CA-JNJFOC-20210344746

PATIENT
  Age: 52 Year
  Sex: Female
  Weight: 86 kg

DRUGS (1)
  1. INFLIXIMAB, RECOMBINANT [Suspect]
     Active Substance: INFLIXIMAB
     Indication: CROHN^S DISEASE
     Route: 042

REACTIONS (6)
  - Intentional product use issue [Unknown]
  - Injection site mass [Unknown]
  - Injection site swelling [Unknown]
  - Off label use [Unknown]
  - Poor venous access [Unknown]
  - Injection site pain [Unknown]
